FAERS Safety Report 6011476-0 (Version None)
Quarter: 2008Q4

REPORT INFORMATION
  Report Type: 
  Country: None (occurrence: None)
  Receive Date: 20081217
  Receipt Date: 20081217
  Transmission Date: 20090506
  Serious: No
  Sender: FDA-Public Use
  Company Number: None

PATIENT
  Age: 22 Year
  Sex: Male
  Weight: 110 kg

DRUGS (1)
  1. VERAMYST [Suspect]
     Indication: REBOUND EFFECT
     Dosage: 1 SPRAY IN EACH NOSTRIL 2X DAY, 1X DAY NASAL
     Route: 045
     Dates: start: 20080617, end: 20081216

REACTIONS (1)
  - EPISTAXIS [None]
